FAERS Safety Report 6143296-0 (Version None)
Quarter: 2009Q2

REPORT INFORMATION
  Report Type: 
  Country: None (occurrence: None)
  Receive Date: 20090403
  Receipt Date: 20090327
  Transmission Date: 20091009
  Serious: Yes (Other)
  Sender: FDA-Public Use
  Company Number: A0775645A

PATIENT
  Age: 55 Year
  Sex: Female

DRUGS (8)
  1. BUPROPION HYDROCHLORIDE [Suspect]
     Indication: DEPRESSION
     Dosage: 100MG SINGLE DOSE
     Route: 048
     Dates: start: 20090131, end: 20090131
  2. WELLBUTRIN [Suspect]
     Indication: DEPRESSION
     Dosage: 300MG PER DAY
     Route: 048
     Dates: start: 20080101
  3. XANAX [Concomitant]
  4. ZYPREXA [Concomitant]
  5. ZOLPIDEM TARTRATE [Concomitant]
  6. AMBIEN [Concomitant]
  7. PREMARIN [Concomitant]
  8. AMPHETAMINE SULFATE [Concomitant]

REACTIONS (6)
  - AURA [None]
  - BLOOD PRESSURE INCREASED [None]
  - ILL-DEFINED DISORDER [None]
  - MOVEMENT DISORDER [None]
  - NUCLEAR MAGNETIC RESONANCE IMAGING ABNORMAL [None]
  - TRANSIENT ISCHAEMIC ATTACK [None]
